FAERS Safety Report 7479237-3 (Version None)
Quarter: 2011Q2

REPORT INFORMATION
  Report Type: 
  Country: None (occurrence: None)
  Receive Date: 20110513
  Receipt Date: 20110505
  Transmission Date: 20111010
  Serious: Yes (Hospitalization)
  Sender: FDA-Public Use
  Company Number: B0717348A

PATIENT
  Sex: Male

DRUGS (11)
  1. IRBESARTAN [Concomitant]
     Dosage: 150MG UNKNOWN
     Route: 048
  2. LASIX [Concomitant]
     Dosage: .5TAB PER DAY
     Route: 048
  3. PLAVIX [Concomitant]
     Dosage: 75MG PER DAY
     Route: 048
  4. PYOSTACINE [Concomitant]
     Route: 048
     Dates: start: 20110222, end: 20110227
  5. KAYEXALATE [Concomitant]
     Route: 048
  6. LEXOMIL [Concomitant]
     Dosage: .75TAB PER DAY
     Route: 048
  7. NEBIVOLOL HCL [Concomitant]
     Dosage: 5MG PER DAY
     Route: 048
  8. VALACYCLOVIR HYDROCHLORIDE [Suspect]
     Dosage: 6TAB PER DAY
     Route: 048
     Dates: start: 20110226, end: 20110227
  9. FOLINORAL [Concomitant]
     Dosage: 25MG MONTHLY
     Route: 048
  10. CALCIDIA [Concomitant]
     Dosage: 1.54G PER DAY
     Route: 048
  11. FOSRENOL [Concomitant]
     Dosage: 500MG TWICE PER DAY
     Route: 048

REACTIONS (5)
  - AGITATION [None]
  - DISORIENTATION [None]
  - HALLUCINATION [None]
  - INCORRECT DOSE ADMINISTERED [None]
  - CONFUSIONAL STATE [None]
